FAERS Safety Report 13881482 (Version 1)
Quarter: 2017Q3

REPORT INFORMATION
  Report Type: Report from Study
  Country: GB (occurrence: GB)
  Receive Date: 20170818
  Receipt Date: 20170818
  Transmission Date: 20171127
  Serious: Yes (Other)
  Sender: FDA-Public Use
  Company Number: GB-JNJFOC-20160505548

PATIENT
  Age: 26 Year
  Sex: Female
  Weight: 86 kg

DRUGS (9)
  1. DOUBLEBASE [Concomitant]
     Active Substance: ISOPROPYL MYRISTATE\PARAFFIN
     Route: 065
     Dates: start: 20120416
  2. EUMOVATE [Concomitant]
     Active Substance: CLOBETASONE BUTYRATE
     Route: 065
     Dates: start: 20121219
  3. LORATADINE. [Concomitant]
     Active Substance: LORATADINE
     Route: 065
     Dates: start: 20150401
  4. LORATADINE. [Concomitant]
     Active Substance: LORATADINE
     Route: 065
     Dates: start: 20140501
  5. BETNOVATE [Concomitant]
     Active Substance: BETAMETHASONE
     Route: 065
     Dates: start: 20121219
  6. STELARA [Suspect]
     Active Substance: USTEKINUMAB
     Indication: PSORIASIS
     Route: 058
     Dates: start: 20130628
  7. LORATADINE. [Concomitant]
     Active Substance: LORATADINE
     Route: 065
     Dates: start: 20130501
  8. BRICANYL [Concomitant]
     Active Substance: TERBUTALINE SULFATE
     Route: 065
     Dates: start: 20140505
  9. SALBUTAMOL [Concomitant]
     Active Substance: ALBUTEROL
     Route: 065
     Dates: start: 20140801

REACTIONS (2)
  - Exposure during pregnancy [Recovered/Resolved]
  - Infection [Unknown]

NARRATIVE: CASE EVENT DATE: 2016
